FAERS Safety Report 22046935 (Version 5)
Quarter: 2023Q2

REPORT INFORMATION
  Report Type: Report from Study
  Country: AU (occurrence: AU)
  Receive Date: 20230228
  Receipt Date: 20230501
  Transmission Date: 20230722
  Serious: Yes (Life-Threatening, Hospitalization)
  Sender: FDA-Public Use
  Company Number: AU-ABBVIE-4320912

PATIENT
  Age: 64 Year
  Sex: Male
  Weight: 95 kg

DRUGS (10)
  1. UPADACITINIB [Suspect]
     Active Substance: UPADACITINIB
     Indication: Axial spondyloarthritis
     Route: 048
     Dates: start: 20220212, end: 20220525
  2. UPADACITINIB [Suspect]
     Active Substance: UPADACITINIB
     Indication: Axial spondyloarthritis
     Route: 048
     Dates: start: 20220922, end: 20221202
  3. PANADOL [Concomitant]
     Active Substance: ACETAMINOPHEN
     Indication: Axial spondyloarthritis
     Route: 048
     Dates: start: 201704
  4. PREDNISOLONE [Concomitant]
     Active Substance: PREDNISOLONE
     Indication: Axial spondyloarthritis
     Route: 048
     Dates: start: 20221128, end: 20221219
  5. MELOXICAM [Concomitant]
     Active Substance: MELOXICAM
     Indication: Axial spondyloarthritis
     Dosage: PATTERN OF USE-CONTINUOUS
     Route: 048
     Dates: start: 202212
  6. ESOMEPRAZOLE [Concomitant]
     Active Substance: ESOMEPRAZOLE
     Indication: Prophylaxis
     Route: 048
     Dates: start: 202212
  7. ARAVA [Concomitant]
     Active Substance: LEFLUNOMIDE
     Indication: Axial spondyloarthritis
     Route: 048
     Dates: start: 20090901, end: 202212
  8. TELTARTAN HCT [Concomitant]
     Indication: Hypertension
     Route: 048
     Dates: start: 20220502, end: 202212
  9. DUTASTERIDE TAMSULOSIN HYDROCHLORIDE [Concomitant]
     Indication: Prostatomegaly
     Dosage: DOSE: 500/400
     Route: 048
     Dates: start: 20220429
  10. HUMIRA [Concomitant]
     Active Substance: ADALIMUMAB
     Indication: Crohn^s disease
     Route: 058
     Dates: start: 20230217, end: 20230217

REACTIONS (2)
  - Prostatic abscess [Recovered/Resolved with Sequelae]
  - Hyponatraemia [Recovered/Resolved]

NARRATIVE: CASE EVENT DATE: 20221202
